FAERS Safety Report 9057108 (Version 1)
Quarter: 2013Q1

REPORT INFORMATION
  Report Type: Report from Study
  Country: US (occurrence: US)
  Receive Date: 20130131
  Receipt Date: 20130131
  Transmission Date: 20140127
  Serious: No
  Sender: FDA-Public Use
  Company Number: US-ABBOTT-12P-163-0997592-00

PATIENT
  Age: 38 Year
  Sex: Female

DRUGS (12)
  1. HUMIRA [Suspect]
     Indication: RHEUMATOID ARTHRITIS
     Dates: start: 201207
  2. PREDNISONE [Concomitant]
     Indication: RHEUMATOID ARTHRITIS
  3. ARAVA [Concomitant]
     Indication: RHEUMATOID ARTHRITIS
  4. OPANA [Concomitant]
     Indication: PAIN
     Dosage: AS NEEDED
  5. AMBIEN [Concomitant]
     Indication: INSOMNIA
     Dosage: NIGHTLY
  6. MULTIVITAMIN [Concomitant]
     Indication: PRODUCT USED FOR UNKNOWN INDICATION
  7. CLONIDINE [Concomitant]
     Indication: ANXIETY
  8. CLONIDINE [Concomitant]
     Indication: INSOMNIA
  9. SEROQUEL [Concomitant]
     Indication: ANXIETY
  10. SEROQUEL [Concomitant]
     Indication: INSOMNIA
  11. CELEXA [Concomitant]
     Indication: DEPRESSION
  12. VOLTAREN GEL [Concomitant]
     Indication: PAIN

REACTIONS (6)
  - Mobility decreased [Not Recovered/Not Resolved]
  - Drug dose omission [Unknown]
  - Device malfunction [Unknown]
  - Pain [Not Recovered/Not Resolved]
  - Drug ineffective [Not Recovered/Not Resolved]
  - Incorrect dose administered [Unknown]
